FAERS Safety Report 15859182 (Version 1)
Quarter: 2019Q1

REPORT INFORMATION
  Report Type: Spontaneous
  Country: JP (occurrence: JP)
  Receive Date: 20190123
  Receipt Date: 20190123
  Transmission Date: 20190417
  Serious: Yes (Other)
  Sender: FDA-Public Use
  Company Number: JP-GLAXOSMITHKLINE-JP2019JPN007178

PATIENT
  Age: 42 Year
  Sex: Male

DRUGS (3)
  1. FLUTIFORM [Suspect]
     Active Substance: FLUTICASONE PROPIONATE\FORMOTEROL FUMARATE
     Indication: ASTHMA
     Dosage: UNK
     Route: 055
  2. SYMBICORT [Suspect]
     Active Substance: BUDESONIDE\FORMOTEROL FUMARATE DIHYDRATE
     Indication: ASTHMA
     Dosage: UNK
     Route: 055
  3. RELVAR ELLIPTA [Suspect]
     Active Substance: FLUTICASONE FUROATE\VILANTEROL TRIFENATATE
     Indication: ASTHMA
     Dosage: UNK
     Route: 055

REACTIONS (12)
  - Haemophilus test positive [Unknown]
  - Diffuse panbronchiolitis [Recovering/Resolving]
  - Pyrexia [Recovering/Resolving]
  - Seasonal allergy [Unknown]
  - Sputum discoloured [Recovering/Resolving]
  - Wheezing [Recovering/Resolving]
  - Streptococcus test positive [Unknown]
  - Dyspnoea exertional [Recovering/Resolving]
  - Sinusitis [Unknown]
  - Productive cough [Recovering/Resolving]
  - Urticaria chronic [Unknown]
  - Drug effect incomplete [Unknown]
